FAERS Safety Report 21066848 (Version 1)
Quarter: 2022Q3

REPORT INFORMATION
  Report Type: Spontaneous
  Country: DE (occurrence: DE)
  Receive Date: 20220712
  Receipt Date: 20220712
  Transmission Date: 20221026
  Serious: Yes (Other)
  Sender: FDA-Public Use
  Company Number: DE-NOVARTISPH-PHHY2015DE018118

PATIENT
  Age: 69 Year
  Sex: Female

DRUGS (12)
  1. FLUOROURACIL [Suspect]
     Active Substance: FLUOROURACIL
     Indication: Adenocarcinoma pancreas
     Dosage: UNK
     Route: 065
     Dates: start: 201102
  2. FLUOROURACIL [Suspect]
     Active Substance: FLUOROURACIL
     Indication: Metastases to liver
     Dosage: UNK (REDUCTION OF CHEMOTHERAPY DOSE IN A FIRST STEP TO 75% OF STANDARD DOSE)
     Route: 065
     Dates: start: 201110
  3. FLUOROURACIL [Suspect]
     Active Substance: FLUOROURACIL
     Dosage: REDUCTION TO 60% OF STANDARD DOSE
     Route: 065
     Dates: start: 201211
  4. LEUCOVORIN CALCIUM [Suspect]
     Active Substance: LEUCOVORIN CALCIUM
     Indication: Adenocarcinoma pancreas
     Dosage: UNK
     Route: 065
     Dates: start: 201102
  5. LEUCOVORIN CALCIUM [Suspect]
     Active Substance: LEUCOVORIN CALCIUM
     Indication: Metastases to liver
     Dosage: REDUCE CHEMOTHERAPY DOSE IN A FIRST STEP TO 75% OF STANDARD DOSE
     Route: 065
     Dates: start: 201110
  6. LEUCOVORIN CALCIUM [Suspect]
     Active Substance: LEUCOVORIN CALCIUM
     Dosage: REDUCTION TO 60% OF STANDARD DOSE
     Route: 065
     Dates: start: 201211
  7. OXALIPLATIN [Suspect]
     Active Substance: OXALIPLATIN
     Indication: Adenocarcinoma pancreas
     Dosage: UNK
     Route: 065
     Dates: start: 201102
  8. OXALIPLATIN [Suspect]
     Active Substance: OXALIPLATIN
     Indication: Metastases to liver
     Dosage: REDUCE CHEMOTHERAPY DOSE IN A FIRST STEP TO 75% OF STANDARD DOSE
     Route: 065
     Dates: start: 201110
  9. OXALIPLATIN [Suspect]
     Active Substance: OXALIPLATIN
     Dosage: UNK (REDUCTION TO 60% OF STANDARD DOSE)
     Route: 065
     Dates: start: 201211
  10. IRINOTECAN [Suspect]
     Active Substance: IRINOTECAN
     Indication: Adenocarcinoma pancreas
     Dosage: UNK
     Route: 065
     Dates: start: 201102
  11. IRINOTECAN [Suspect]
     Active Substance: IRINOTECAN
     Indication: Metastases to liver
     Dosage: REDUCE CHEMOTHERAPY DOSE IN A FIRST STEP TO 75% OF STANDARD DOSE
     Route: 065
     Dates: start: 201110
  12. IRINOTECAN [Suspect]
     Active Substance: IRINOTECAN
     Dosage: REDUCTION TO 60% OF STANDARD DOSE
     Route: 065
     Dates: start: 201211

REACTIONS (7)
  - Neutropenia [Unknown]
  - Mucosal inflammation [Unknown]
  - Thrombocytopenia [Unknown]
  - Polyneuropathy [Unknown]
  - Leukopenia [Unknown]
  - Paraesthesia [Recovered/Resolved]
  - Product use in unapproved indication [Unknown]
